FAERS Safety Report 10014518 (Version 1)
Quarter: 2014Q1

REPORT INFORMATION
  Report Type: Spontaneous
  Country: US (occurrence: US)
  Receive Date: 20140317
  Receipt Date: 20140317
  Transmission Date: 20141002
  Serious: Yes (Life-Threatening, Hospitalization, Other)
  Sender: FDA-Public Use
  Company Number: US-MALLINCKRODT-T201401537

PATIENT
  Age: 17 Year
  Sex: Male

DRUGS (1)
  1. GABLOFEN [Suspect]
     Indication: MUSCLE SPASTICITY
     Dosage: 331.6 MCG/DAY
     Route: 037

REACTIONS (8)
  - Implant site infection [Not Recovered/Not Resolved]
  - Cerebrospinal fluid leakage [None]
  - Pyrexia [None]
  - Withdrawal syndrome [Recovered/Resolved]
  - Vomiting [None]
  - Feeding disorder [None]
  - Moaning [Unknown]
  - Agitation [Unknown]
